FAERS Safety Report 6178596-1 (Version None)
Quarter: 2009Q2

REPORT INFORMATION
  Report Type: 
  Country: None (occurrence: None)
  Receive Date: 20090430
  Receipt Date: 20090419
  Transmission Date: 20091009
  Serious: Yes (Other)
  Sender: FDA-Public Use
  Company Number: 1-18159603

PATIENT
  Age: 71 Year
  Sex: Female

DRUGS (2)
  1. METRONIDAZOLE [Suspect]
     Dosage: ORAL
     Route: 048
  2. AMIODARONE HCL [Suspect]
     Dosage: ORAL
     Route: 048

REACTIONS (4)
  - CARDIAC ARREST [None]
  - DRUG INTERACTION [None]
  - ELECTROCARDIOGRAM QT PROLONGED [None]
  - TORSADE DE POINTES [None]
